FAERS Safety Report 26194311 (Version 1)
Quarter: 2025Q4

REPORT INFORMATION
  Report Type: Spontaneous
  Country: US (occurrence: US)
  Receive Date: 20251224
  Receipt Date: 20251224
  Transmission Date: 20260118
  Serious: Yes (Other)
  Sender: RANBAXY
  Company Number: US-SUN PHARMACEUTICAL INDUSTRIES LTD-2025R1-543196

PATIENT
  Age: 62 Year
  Sex: Female

DRUGS (8)
  1. TEMOZOLOMIDE [Suspect]
     Active Substance: TEMOZOLOMIDE
     Indication: Schwannoma
     Dosage: UNK
     Route: 065
  2. TEMOZOLOMIDE [Suspect]
     Active Substance: TEMOZOLOMIDE
     Indication: Acquired gene mutation
  3. DOXORUBICIN [Suspect]
     Active Substance: DOXORUBICIN
     Indication: Schwannoma
     Dosage: UNK
     Route: 065
  4. DOXORUBICIN [Suspect]
     Active Substance: DOXORUBICIN
     Indication: Acquired gene mutation
  5. OLAPARIB [Suspect]
     Active Substance: OLAPARIB
     Indication: Schwannoma
     Dosage: UNK
     Route: 065
     Dates: start: 202410
  6. OLAPARIB [Suspect]
     Active Substance: OLAPARIB
     Indication: Acquired gene mutation
  7. CABOZANTINIB [Suspect]
     Active Substance: CABOZANTINIB
     Indication: Schwannoma
     Dosage: UNK
     Route: 065
  8. CABOZANTINIB [Suspect]
     Active Substance: CABOZANTINIB
     Indication: Acquired gene mutation

REACTIONS (1)
  - Neoplasm progression [Unknown]

NARRATIVE: CASE EVENT DATE: 20241201
